FAERS Safety Report 7372632-2 (Version None)
Quarter: 2011Q1

REPORT INFORMATION
  Report Type: 
  Country: None (occurrence: None)
  Receive Date: 20110324
  Receipt Date: 20110315
  Transmission Date: 20110831
  Serious: Yes (Disabling)
  Sender: FDA-Public Use
  Company Number: AU-B.I. PHARMACEUTICALS,INC./RIDGEFIELD-2011-AU-00169AU

PATIENT
  Sex: Male

DRUGS (2)
  1. SINEMET [Concomitant]
     Indication: PARKINSON'S DISEASE
  2. SIFROL [Suspect]
     Indication: PARKINSON'S DISEASE

REACTIONS (1)
  - MOTOR DYSFUNCTION [None]
